FAERS Safety Report 18158108 (Version 1)
Quarter: 2020Q3

REPORT INFORMATION
  Report Type: Spontaneous
  Country: GB (occurrence: GB)
  Receive Date: 20200817
  Receipt Date: 20200817
  Transmission Date: 20201103
  Serious: Yes (Death, Other)
  Sender: FDA-Public Use
  Company Number: GB-SHIRE-GB202026505

PATIENT

DRUGS (1)
  1. HUMAN NORMAL IMMUNOGLOBULIN [Suspect]
     Active Substance: HUMAN IMMUNOGLOBULIN G
     Indication: HEART BLOCK CONGENITAL
     Dosage: UNK
     Route: 015

REACTIONS (4)
  - Foetal exposure during pregnancy [Fatal]
  - Product use in unapproved indication [Unknown]
  - Heart block congenital [Fatal]
  - Drug ineffective for unapproved indication [Fatal]
